FAERS Safety Report 9714272 (Version 2)
Quarter: 2013Q4

REPORT INFORMATION
  Report Type: Spontaneous
  Country: US (occurrence: US)
  Receive Date: 20131126
  Receipt Date: 20131126
  Transmission Date: 20140711
  Serious: No
  Sender: FDA-Public Use
  Company Number: US-GILEAD-2008-0019072

PATIENT
  Sex: Female
  Weight: 60.78 kg

DRUGS (11)
  1. LETAIRIS [Suspect]
     Indication: PULMONARY ARTERIAL HYPERTENSION
     Route: 048
     Dates: start: 20081107
  2. COUMADIN [Concomitant]
  3. LASIX [Concomitant]
  4. NORVASC [Concomitant]
  5. METOPROLOL [Concomitant]
  6. LISINOPRIL [Concomitant]
  7. ASPIRIN [Concomitant]
  8. PERCOCET [Concomitant]
  9. CALCIUM [Concomitant]
  10. POTASSIUM CHLORIDE [Concomitant]
  11. MULTIVITAMIN [Concomitant]

REACTIONS (1)
  - Anaemia [Unknown]
